FAERS Safety Report 6565411-7 (Version None)
Quarter: 2010Q1

REPORT INFORMATION
  Report Type: 
  Country: None (occurrence: None)
  Receive Date: 20100201
  Receipt Date: 20100119
  Transmission Date: 20100710
  Serious: Yes (Other)
  Sender: FDA-Public Use
  Company Number: PHEH2010US01043

PATIENT
  Sex: Female

DRUGS (13)
  1. METOPROLOL TARTRATE [Suspect]
  2. LISINOPRIL [Suspect]
  3. PAXIL [Concomitant]
  4. PLAVIX [Concomitant]
  5. LIPITOR [Concomitant]
  6. ASPIRIN [Concomitant]
  7. POTASSIUM CHLORIDE [Concomitant]
  8. LASIX [Concomitant]
  9. VALIUM [Concomitant]
  10. NITROGLYCERIN [Concomitant]
  11. VITAMIN D [Concomitant]
     Dosage: UNK
  12. ZINC [Concomitant]
  13. FOLIC ACID [Concomitant]

REACTIONS (3)
  - ASTHMA [None]
  - BRONCHITIS [None]
  - COUGH [None]
